FAERS Safety Report 11963571 (Version 2)
Quarter: 2016Q1

REPORT INFORMATION
  Report Type: Report from Study
  Country: US (occurrence: US)
  Receive Date: 20160126
  Receipt Date: 20160202
  Transmission Date: 20160526
  Serious: No
  Sender: FDA-Public Use
  Company Number: US-ABBVIE-15K-163-1383414-00

PATIENT
  Age: 61 Year
  Sex: Female

DRUGS (2)
  1. METHOTREXATE [Concomitant]
     Active Substance: METHOTREXATE
     Indication: PRODUCT USED FOR UNKNOWN INDICATION
  2. HUMIRA [Suspect]
     Active Substance: ADALIMUMAB
     Indication: RHEUMATOID ARTHRITIS
     Route: 065
     Dates: start: 20120903

REACTIONS (15)
  - Major depression [Unknown]
  - Precancerous cells present [Unknown]
  - Abdominal discomfort [Not Recovered/Not Resolved]
  - Drug effect decreased [Recovering/Resolving]
  - Hyperhidrosis [Not Recovered/Not Resolved]
  - Blood creatine phosphokinase increased [Unknown]
  - Intestinal polyp [Unknown]
  - Nerve root compression [Recovered/Resolved]
  - Malaise [Unknown]
  - Muscular weakness [Not Recovered/Not Resolved]
  - Inflammation [Unknown]
  - Feeling hot [Unknown]
  - Mental impairment [Recovered/Resolved]
  - Influenza [Recovered/Resolved]
  - Fatigue [Unknown]

NARRATIVE: CASE EVENT DATE: 20120903
